FAERS Safety Report 15739925 (Version 2)
Quarter: 2019Q1

REPORT INFORMATION
  Report Type: Spontaneous
  Country: US (occurrence: US)
  Receive Date: 20181219
  Receipt Date: 20190329
  Transmission Date: 20190417
  Serious: Yes (Other)
  Sender: FDA-Public Use
  Company Number: US-SA-2018SA341786

PATIENT
  Age: 49 Year
  Sex: Female
  Weight: 69 kg

DRUGS (7)
  1. NEOSAR [Concomitant]
     Active Substance: CYCLOPHOSPHAMIDE
     Dosage: UNK
  2. NEXIUM [Concomitant]
     Active Substance: ESOMEPRAZOLE MAGNESIUM
     Dosage: UNK
     Dates: start: 2005
  3. TAXOTERE [Suspect]
     Active Substance: DOCETAXEL
     Indication: BREAST CANCER FEMALE
     Dosage: 130 MG, Q3W
     Route: 042
     Dates: start: 20051201, end: 20051201
  4. ADRIAMYCIN [Concomitant]
     Active Substance: DOXORUBICIN HYDROCHLORIDE
     Dosage: UNK
  5. ZOCOR [Concomitant]
     Active Substance: SIMVASTATIN
     Dosage: UNK
     Route: 065
     Dates: start: 2005
  6. TAXOTERE [Suspect]
     Active Substance: DOCETAXEL
     Dosage: 130 MG, Q3W
     Route: 042
     Dates: start: 20060323, end: 20060323
  7. HYDROCHLOROTHIAZIDE. [Concomitant]
     Active Substance: HYDROCHLOROTHIAZIDE
     Dosage: UNK
     Dates: start: 2005

REACTIONS (1)
  - Alopecia [Recovering/Resolving]

NARRATIVE: CASE EVENT DATE: 200606
